FAERS Safety Report 11344619 (Version 1)
Quarter: 2015Q3

REPORT INFORMATION
  Report Type: Spontaneous
  Country: US (occurrence: US)
  Receive Date: 20150806
  Receipt Date: 20150806
  Transmission Date: 20151125
  Serious: No
  Sender: FDA-Public Use
  Company Number: US-ENDO PHARMACEUTICALS INC.-PRED20140073

PATIENT
  Sex: Female
  Weight: 61.52 kg

DRUGS (7)
  1. PREDNISONE TABLETS [Suspect]
     Active Substance: PREDNISONE
     Route: 048
     Dates: start: 20140802, end: 20140803
  2. DECADRON [Concomitant]
     Active Substance: DEXAMETHASONE
     Indication: DERMATITIS ATOPIC
  3. TRIAMCINOLONE [Concomitant]
     Active Substance: TRIAMCINOLONE
     Indication: PRODUCT USED FOR UNKNOWN INDICATION
  4. PREDNISONE TABLETS [Suspect]
     Active Substance: PREDNISONE
     Route: 048
     Dates: start: 20140730, end: 20140801
  5. PREDNISONE TABLETS [Suspect]
     Active Substance: PREDNISONE
     Route: 048
     Dates: start: 20140804, end: 20140805
  6. PREDNISONE TABLETS [Suspect]
     Active Substance: PREDNISONE
     Indication: DERMATITIS ATOPIC
     Route: 048
     Dates: start: 20140726, end: 20140729
  7. DESONIDE. [Concomitant]
     Active Substance: DESONIDE
     Indication: PRODUCT USED FOR UNKNOWN INDICATION

REACTIONS (1)
  - Drug effect decreased [Unknown]

NARRATIVE: CASE EVENT DATE: 2014
